FAERS Safety Report 18986727 (Version 1)
Quarter: 2021Q1

REPORT INFORMATION
  Report Type: Spontaneous
  Country: US (occurrence: US)
  Receive Date: 20210308
  Receipt Date: 20210308
  Transmission Date: 20210420
  Serious: Yes (Life-Threatening, Disabling, Other)
  Sender: FDA-Public Use
  Company Number: None

PATIENT
  Age: 47 Year
  Sex: Female
  Weight: 69.75 kg

DRUGS (8)
  1. TOPAMAX [Suspect]
     Active Substance: TOPIRAMATE
  2. DOUBLE LEG BRACES [Concomitant]
  3. VITAMIN D [Concomitant]
     Active Substance: VITAMIN D NOS
  4. FENTANYL. [Suspect]
     Active Substance: FENTANYL
     Indication: WEIGHT DECREASED
  5. OXYCODONE [Suspect]
     Active Substance: OXYCODONE
  6. MAGNESIUM [Concomitant]
     Active Substance: MAGNESIUM
  7. FENTANYL. [Suspect]
     Active Substance: FENTANYL
     Indication: PAIN
  8. VITAMIN B12 [Concomitant]
     Active Substance: CYANOCOBALAMIN

REACTIONS (8)
  - Victim of abuse [None]
  - Victim of sexual abuse [None]
  - Gingival pain [None]
  - Facial paralysis [None]
  - Withdrawal syndrome [None]
  - Dental caries [None]
  - Tooth disorder [None]
  - Malaria [None]

NARRATIVE: CASE EVENT DATE: 20210216
